FAERS Safety Report 7801447-3 (Version None)
Quarter: 2011Q4

REPORT INFORMATION
  Report Type: 
  Country: None (occurrence: None)
  Receive Date: 20111006
  Receipt Date: 20111006
  Transmission Date: 20120403
  Serious: Yes (Hospitalization)
  Sender: FDA-Public Use
  Company Number: None

PATIENT
  Age: 61 Year
  Sex: Male
  Weight: 75 kg

DRUGS (3)
  1. COGENTIN [Concomitant]
  2. HYDROCHLOROTHIAZIDE [Concomitant]
  3. HALDOL [Suspect]
     Indication: SCHIZOPHRENIA
     Dosage: 5 MG IM RECENT
     Route: 030

REACTIONS (4)
  - EXTRAPYRAMIDAL DISORDER [None]
  - RHABDOMYOLYSIS [None]
  - CATATONIA [None]
  - DEHYDRATION [None]
